FAERS Safety Report 5754813-4 (Version None)
Quarter: 2008Q2

REPORT INFORMATION
  Report Type: 
  Country: None (occurrence: None)
  Receive Date: 20080527
  Receipt Date: 20080512
  Transmission Date: 20081010
  Serious: Yes (Other)
  Sender: FDA-Public Use
  Company Number: S08-USA-01749-01

PATIENT
  Age: 65 Year
  Sex: Female

DRUGS (5)
  1. ARMOUR THYROID [Suspect]
     Indication: HYPOTHYROIDISM
     Dosage: 135 MG QD PO
     Route: 048
     Dates: end: 20071201
  2. THYROID TAB [Suspect]
     Indication: HYPOTHYROIDISM
     Dosage: 120 MG QD PO
     Route: 048
     Dates: start: 20071201, end: 20080116
  3. THYROID TAB [Suspect]
     Indication: HYPOTHYROIDISM
     Dosage: 90 MG QD PO
     Route: 048
     Dates: start: 20080117, end: 20080201
  4. THYROID TAB [Suspect]
     Indication: HYPOTHYROIDISM
     Dosage: 75 MG QD PO
     Route: 048
     Dates: start: 20080201, end: 20080301
  5. THYROID TAB [Suspect]
     Indication: HYPOTHYROIDISM
     Dates: start: 19670101

REACTIONS (3)
  - BLOOD THYROID STIMULATING HORMONE DECREASED [None]
  - PALPITATIONS [None]
  - UTERINE LEIOMYOMA [None]
